FAERS Safety Report 4689695-5 (Version None)
Quarter: 2005Q2

REPORT INFORMATION
  Report Type: 
  Country: None (occurrence: None)
  Receive Date: 20050613
  Receipt Date: 20050613
  Transmission Date: 20051028
  Serious: Yes (Hospitalization)
  Sender: FDA-Public Use
  Company Number: None

PATIENT
  Age: 48 Year
  Sex: Female
  Weight: 63.9572 kg

DRUGS (1)
  1. AMO ULTRA CARE    3% HYDROGEN PEROXIDE    AMO [Suspect]
     Indication: CORRECTIVE LENS USER
     Dosage: 1 ML   ONCE   INTRAOCULA
     Route: 031
     Dates: start: 20050507, end: 20050507

REACTIONS (2)
  - EYE IRRITATION [None]
  - MEDICATION ERROR [None]
